FAERS Safety Report 7158213-4 (Version None)
Quarter: 2010Q4

REPORT INFORMATION
  Report Type: 
  Country: None (occurrence: None)
  Receive Date: 20101214
  Receipt Date: 20100323
  Transmission Date: 20110411
  Serious: No
  Sender: FDA-Public Use
  Company Number: US-ASTRAZENECA-2010SE12923

PATIENT
  Age: 66 Year
  Sex: Female

DRUGS (5)
  1. CRESTOR [Suspect]
     Indication: BLOOD CHOLESTEROL
     Route: 048
     Dates: start: 20090101
  2. SYNTHROID [Concomitant]
  3. AROMASIN [Concomitant]
  4. TRILEPTAL [Concomitant]
  5. BONIVA [Concomitant]

REACTIONS (3)
  - DIZZINESS [None]
  - HIGH DENSITY LIPOPROTEIN DECREASED [None]
  - VOMITING [None]
